FAERS Safety Report 6956093-0 (Version None)
Quarter: 2010Q3

REPORT INFORMATION
  Report Type: 
  Country: None (occurrence: None)
  Receive Date: 20100830
  Receipt Date: 20100817
  Transmission Date: 20110219
  Serious: No
  Sender: FDA-Public Use
  Company Number: US-B.I. PHARMACEUTICALS,INC./RIDGEFIELD-2010-BP-09340BP

PATIENT
  Age: 74 Year
  Sex: Male

DRUGS (4)
  1. MIRAPEX [Suspect]
     Indication: PARKINSON'S DISEASE
     Dosage: 6 MG
     Route: 048
     Dates: start: 20080101
  2. STALEVO 100 [Concomitant]
     Indication: PARKINSON'S DISEASE
     Route: 048
  3. AZILECT [Concomitant]
     Indication: PARKINSON'S DISEASE
     Dosage: 1 MG
     Route: 048
  4. FLUOXETINE HCL [Concomitant]
     Indication: DEPRESSION
     Dosage: 20 MG
     Route: 048

REACTIONS (2)
  - THERAPEUTIC REACTION TIME DECREASED [None]
  - THERAPEUTIC RESPONSE DELAYED [None]
